FAERS Safety Report 6444103-9 (Version None)
Quarter: 2009Q4

REPORT INFORMATION
  Report Type: 
  Country: None (occurrence: None)
  Receive Date: 20091118
  Receipt Date: 20091109
  Transmission Date: 20100525
  Serious: Yes (Death, Hospitalization)
  Sender: FDA-Public Use
  Company Number: RU-LLY01-RU200706000679

PATIENT
  Sex: Female
  Weight: 51 kg

DRUGS (8)
  1. PEMETREXED [Suspect]
     Indication: GASTRIC CANCER
     Dosage: 1030 MG, DAY 1 OF 21 DAY CYCLE
     Route: 042
     Dates: start: 20070407
  2. CISPLATIN [Suspect]
     Indication: GASTRIC CANCER
     Dosage: 110 MG, DAY 1 OF 21 DAY CYCLE
     Route: 042
     Dates: start: 20070407
  3. FOLIC ACID [Concomitant]
     Indication: PROPHYLAXIS
     Dosage: 400 MG, DAILY (1/D)
     Route: 048
     Dates: start: 20070327, end: 20070528
  4. VITAMIN B-12 [Concomitant]
     Indication: PROPHYLAXIS
     Dosage: 100 UG, UNK
     Route: 030
     Dates: start: 20070327, end: 20070327
  5. DEXAMETHASONE [Concomitant]
     Indication: PROPHYLAXIS
     Dosage: 4 MG, 2/D
     Route: 030
     Dates: start: 20070406, end: 20070525
  6. GLUCOSE SOLUTION [Concomitant]
     Indication: LEUKOPENIA
     Dates: start: 20070530, end: 20070601
  7. ONDANSETRON [Concomitant]
     Indication: LEUKOPENIA
     Dates: start: 20070530, end: 20070601
  8. FILGRASTIM [Concomitant]
     Indication: LEUKOPENIA
     Dates: start: 20070530, end: 20070601

REACTIONS (1)
  - PANCYTOPENIA [None]
